FAERS Safety Report 22911023 (Version 4)
Quarter: 2024Q4

REPORT INFORMATION
  Report Type: Spontaneous
  Country: CZ (occurrence: CZ)
  Receive Date: 20230906
  Receipt Date: 20241005
  Transmission Date: 20250114
  Serious: Yes (Life-Threatening, Hospitalization, Other)
  Sender: CELLTRION
  Company Number: CZ-CELLTRION INC.-2023CZ017380

PATIENT

DRUGS (44)
  1. RITUXIMAB [Suspect]
     Active Substance: RITUXIMAB
     Indication: Follicular lymphoma stage IV
     Dosage: CYCLE 1 (DAYS 1, 8, 15, AND 22) AND ON DAY 1 OF EACH 28-DAY CYCLE,
     Route: 042
  2. RITUXIMAB [Suspect]
     Active Substance: RITUXIMAB
     Indication: Lymphadenopathy
     Dosage: 6 CYCLES OF R-CHOP (RITUXIMAB, CYCLOPHOSPHAMIDE, DOXORUBICIN, VINCRISTINE, PREDNISONE)
     Route: 042
  3. RITUXIMAB [Suspect]
     Active Substance: RITUXIMAB
     Indication: Follicular lymphoma
     Dosage: MAINTENANCE TREATMENT OF RITUXIMAB ADMINISTERED ONCE EVERY 2 MONTHS
  4. RITUXIMAB [Suspect]
     Active Substance: RITUXIMAB
     Dosage: R2 TREATMENT; 375 MG/M2 INTRAVENOUSLY EVERY WEEK IN CYCLE 1 (DAYS 1, 8, 15 AND 22) AND DAY 1 OF EACH
     Route: 042
  5. RITUXIMAB [Suspect]
     Active Substance: RITUXIMAB
     Dosage: MONOTHERAPY
  6. RITUXIMAB [Suspect]
     Active Substance: RITUXIMAB
     Dosage: 375 MG/M2 INTRAVENOUSLY EVERY WEEK IN THE 1ST CYCLE (1ST, 8TH, 15TH AND 22ND DAY) AND DAY 1 OF EACH
     Route: 042
  7. RITUXIMAB [Suspect]
     Active Substance: RITUXIMAB
     Dosage: UNK
     Route: 065
  8. BENDAMUSTINE [Suspect]
     Active Substance: BENDAMUSTINE
     Indication: Follicular lymphoma stage I
     Dosage: 2 CYCLES, 70 MG/M2
  9. BENDAMUSTINE [Suspect]
     Active Substance: BENDAMUSTINE
     Indication: Follicular lymphoma
     Dosage: 70 MG/M^2, LOW DOSE
     Route: 065
  10. CARBOPLATIN [Suspect]
     Active Substance: CARBOPLATIN
     Indication: Follicular lymphoma
     Dosage: ICE CHEMOTHERAPY; RESCUE TREATMENT
  11. CARBOPLATIN [Suspect]
     Active Substance: CARBOPLATIN
     Dosage: UNK
     Route: 065
  12. CISPLATIN [Suspect]
     Active Substance: CISPLATIN
     Indication: Follicular lymphoma
     Dosage: GDP SALVAGE REGIMEN
  13. CISPLATIN [Suspect]
     Active Substance: CISPLATIN
     Dosage: DHAP REGIMEN (A TOTAL OF THREE CYCLES WERE ADMINISTERED)
  14. CISPLATIN [Suspect]
     Active Substance: CISPLATIN
     Dosage: UNK
     Route: 065
  15. CYCLOPHOSPHAMIDE [Suspect]
     Active Substance: CYCLOPHOSPHAMIDE
     Indication: Follicular lymphoma
     Dosage: 6 CYCLES OF R-CHOP
  16. CYCLOPHOSPHAMIDE [Suspect]
     Active Substance: CYCLOPHOSPHAMIDE
     Indication: Lymphadenopathy
     Dosage: UNK
     Route: 065
  17. CYTOSINE [Suspect]
     Active Substance: CYTOSINE
     Indication: Follicular lymphoma
     Dosage: UNK
     Route: 065
  18. CYTARABINE [Suspect]
     Active Substance: CYTARABINE
     Indication: Follicular lymphoma
     Dosage: DHAP REGIMEN (A TOTAL OF THREE CYCLES WERE ADMINISTERED)
  19. DEXAMETHASONE [Suspect]
     Active Substance: DEXAMETHASONE
     Indication: Follicular lymphoma
     Dosage: GDP SALVAGE REGIMEN
  20. DEXAMETHASONE [Suspect]
     Active Substance: DEXAMETHASONE
     Dosage: DHAP REGIMEN
  21. DEXAMETHASONE [Suspect]
     Active Substance: DEXAMETHASONE
     Dosage: THREE CYCLES OF FND (FLUDARABINE, MITOXANTRONE, DEXAMETHASONE)
  22. DEXAMETHASONE [Suspect]
     Active Substance: DEXAMETHASONE
     Dosage: FOUR MORE CYCLES OF ETOPOSIDE WITH DEXAMETHASONE
  23. DEXAMETHASONE [Suspect]
     Active Substance: DEXAMETHASONE
     Dosage: UNK
     Route: 065
  24. DOXORUBICIN [Suspect]
     Active Substance: DOXORUBICIN
     Indication: Follicular lymphoma
     Dosage: 6 CYCLES OF R-CHOP
  25. DOXORUBICIN HYDROCHLORIDE [Suspect]
     Active Substance: DOXORUBICIN HYDROCHLORIDE
     Indication: Lymphadenopathy
     Dosage: UNK
     Route: 065
  26. ETOPOSIDE [Suspect]
     Active Substance: ETOPOSIDE
     Indication: Follicular lymphoma
     Dosage: ICE CHEMOTHERAPY; RESCUE TREATMENT
  27. ETOPOSIDE [Suspect]
     Active Substance: ETOPOSIDE
     Dosage: FOUR MORE CYCLES OF ETOPOSIDE WITH DEXAMETHASONE
  28. ETOPOSIDE [Suspect]
     Active Substance: ETOPOSIDE
     Dosage: UNK
     Route: 065
  29. FLUDARABINE [Suspect]
     Active Substance: FLUDARABINE PHOSPHATE
     Indication: Follicular lymphoma
     Dosage: THREE CYCLES OF FND (FLUDARABINE, MITOXANTRONE, DEXAMETHASONE)
  30. FLUDARABINE [Suspect]
     Active Substance: FLUDARABINE PHOSPHATE
     Dosage: UNK
     Route: 065
  31. GEMCITABINE [Suspect]
     Active Substance: GEMCITABINE
     Indication: Follicular lymphoma
     Dosage: GDP SALVAGE REGIMEN
  32. GEMCITABINE [Suspect]
     Active Substance: GEMCITABINE
     Dosage: UNK
     Route: 065
  33. IDELALISIB [Suspect]
     Active Substance: IDELALISIB
     Indication: Follicular lymphoma
     Dosage: UNK
     Route: 065
  34. IFOSFAMIDE [Suspect]
     Active Substance: IFOSFAMIDE
     Indication: Follicular lymphoma
     Dosage: ICE CHEMOTHERAPY; RESCUE TREATMENT
  35. IFOSFAMIDE [Suspect]
     Active Substance: IFOSFAMIDE
     Dosage: UNK
     Route: 065
  36. LENALIDOMIDE [Suspect]
     Active Substance: LENALIDOMIDE
     Indication: Follicular lymphoma stage IV
     Dosage: 1.-21. DAY OF 28 DAY CYCLE
     Route: 048
  37. LENALIDOMIDE [Suspect]
     Active Substance: LENALIDOMIDE
     Indication: Lymphadenopathy
     Dosage: 20 MG ORALLY ONCE A DAY ON DAYS 1-21 OF THE 28-DAY CYCLE
     Route: 048
  38. LENALIDOMIDE [Suspect]
     Active Substance: LENALIDOMIDE
     Indication: Follicular lymphoma
     Dosage: UNK
     Route: 065
  39. MITOXANTRONE [Suspect]
     Active Substance: MITOXANTRONE HYDROCHLORIDE
     Indication: Follicular lymphoma
     Dosage: THREE CYCLES OF FND (FLUDARABINE, MITOXANTRONE, DEXAMETHASONE)
  40. MITOXANTRONE [Suspect]
     Active Substance: MITOXANTRONE HYDROCHLORIDE
     Dosage: UNK
     Route: 065
  41. PREDNISONE [Suspect]
     Active Substance: PREDNISONE
     Indication: Follicular lymphoma
     Dosage: 6 CYCLES OF R-CHOP
  42. PREDNISONE [Suspect]
     Active Substance: PREDNISONE
     Indication: Lymphadenopathy
     Dosage: UNK
     Route: 065
  43. VINCRISTINE [Suspect]
     Active Substance: VINCRISTINE
     Indication: Follicular lymphoma
     Dosage: 6 CYCLES OF R-CHOP
  44. VINCRISTINE [Suspect]
     Active Substance: VINCRISTINE
     Indication: Lymphadenopathy
     Dosage: UNK
     Route: 065

REACTIONS (10)
  - Febrile neutropenia [Recovered/Resolved]
  - Myelodysplastic syndrome [Recovered/Resolved with Sequelae]
  - Neoplasm progression [Unknown]
  - Haematotoxicity [Unknown]
  - Herpes zoster [Recovered/Resolved]
  - Herpes zoster [Unknown]
  - Thrombocytopenia [Unknown]
  - Drug ineffective [Unknown]
  - Therapeutic product effect incomplete [Unknown]
  - Therapy non-responder [Unknown]
